FAERS Safety Report 16256221 (Version 3)
Quarter: 2019Q3

REPORT INFORMATION
  Report Type: Spontaneous
  Country: US (occurrence: US)
  Receive Date: 20190430
  Receipt Date: 20190808
  Transmission Date: 20191004
  Serious: Yes (Hospitalization, Other)
  Sender: FDA-Public Use
  Company Number: US-STRONGBRIDGE BIOPHARMA-2019-STR-000095

PATIENT
  Age: 12 Year
  Sex: Female
  Weight: 32 kg

DRUGS (7)
  1. VITAMIN D                          /00318501/ [Concomitant]
     Active Substance: CHOLECALCIFEROL
     Indication: PRODUCT USED FOR UNKNOWN INDICATION
     Dosage: 10000 IU A DAY
     Route: 065
  2. KEVEYIS [Suspect]
     Active Substance: DICHLORPHENAMIDE
     Indication: FAMILIAL PERIODIC PARALYSIS
     Dosage: 50 MG, BID
     Route: 048
     Dates: start: 20190404
  3. KEVEYIS [Suspect]
     Active Substance: DICHLORPHENAMIDE
     Dosage: 25 MG, BID
     Dates: start: 20190604
  4. KEVEYIS [Suspect]
     Active Substance: DICHLORPHENAMIDE
     Dosage: 50 MG, BID
     Route: 048
     Dates: start: 20190513, end: 20190604
  5. KEVEYIS [Suspect]
     Active Substance: DICHLORPHENAMIDE
     Dosage: 50 MG, BID
     Route: 048
     Dates: start: 20190405
  6. KEVEYIS [Suspect]
     Active Substance: DICHLORPHENAMIDE
     Dosage: 25 MG, BID
     Route: 048
     Dates: start: 20190423, end: 20190513
  7. POTASSIUM CHLORIDE. [Concomitant]
     Active Substance: POTASSIUM CHLORIDE
     Indication: PRODUCT USED FOR UNKNOWN INDICATION
     Dosage: 20MEQ/15 ML 36 MEQ 3 TIMES A DAY
     Route: 065

REACTIONS (11)
  - Clostridium difficile infection [Recovered/Resolved]
  - Clostridium difficile infection [Recovered/Resolved]
  - Pyrexia [Unknown]
  - Weight decreased [Unknown]
  - Diarrhoea infectious [Unknown]
  - Nasopharyngitis [Recovered/Resolved]
  - Diarrhoea [Recovering/Resolving]
  - Muscular weakness [Recovered/Resolved]
  - Escherichia infection [Recovering/Resolving]
  - Abdominal pain upper [Recovering/Resolving]
  - Gastroenteritis viral [Recovering/Resolving]

NARRATIVE: CASE EVENT DATE: 201905
